FAERS Safety Report 16379336 (Version 3)
Quarter: 2021Q1

REPORT INFORMATION
  Report Type: Report from Study
  Country: PA (occurrence: PA)
  Receive Date: 20190531
  Receipt Date: 20210121
  Transmission Date: 20210419
  Serious: Yes (Other)
  Sender: FDA-Public Use
  Company Number: PHHY2019PA038643

PATIENT
  Sex: Male

DRUGS (5)
  1. COD LIVER OIL [Concomitant]
     Active Substance: COD LIVER OIL
     Indication: PRODUCT USED FOR UNKNOWN INDICATION
     Dosage: 1 DF, QD
     Route: 048
     Dates: start: 201901
  2. MAGNESIUM [Concomitant]
     Active Substance: MAGNESIUM
     Indication: PRODUCT USED FOR UNKNOWN INDICATION
     Dosage: 1 DF, QD
     Route: 048
  3. GILENYA [Suspect]
     Active Substance: FINGOLIMOD HYDROCHLORIDE
     Dosage: 0.5 MG, QD
     Route: 048
     Dates: start: 201901
  4. VITAMINS NOS [Concomitant]
     Active Substance: VITAMINS
     Indication: PRODUCT USED FOR UNKNOWN INDICATION
     Route: 065
  5. GILENYA [Suspect]
     Active Substance: FINGOLIMOD HYDROCHLORIDE
     Indication: RELAPSING-REMITTING MULTIPLE SCLEROSIS
     Dosage: 0.5 MG, QD
     Route: 048
     Dates: start: 20181212

REACTIONS (24)
  - Ill-defined disorder [Unknown]
  - Multiple sclerosis relapse [Unknown]
  - Eye pain [Unknown]
  - Drug ineffective [Unknown]
  - Dysstasia [Recovering/Resolving]
  - Paralysis [Unknown]
  - Insomnia [Unknown]
  - Asthenia [Unknown]
  - Depression [Unknown]
  - Vitamin B12 deficiency [Unknown]
  - Nicotinic acid deficiency [Unknown]
  - Drug metabolising enzyme decreased [Unknown]
  - Sleep disorder [Unknown]
  - Fatigue [Unknown]
  - Discomfort [Unknown]
  - Malaise [Unknown]
  - Stress [Unknown]
  - Apathy [Unknown]
  - Dizziness [Unknown]
  - Vitamin D decreased [Unknown]
  - Memory impairment [Unknown]
  - Vitamin D deficiency [Unknown]
  - Gait disturbance [Unknown]
  - White blood cell count decreased [Unknown]
